FAERS Safety Report 4747300-3 (Version None)
Quarter: 2005Q3

REPORT INFORMATION
  Report Type: 
  Country: None (occurrence: None)
  Receive Date: 20050817
  Receipt Date: 20050303
  Transmission Date: 20060218
  Serious: Yes (Hospitalization, Other)
  Sender: FDA-Public Use
  Company Number: US-MERCK-0503USA00854

PATIENT
  Age: 77 Year
  Sex: Male
  Weight: 95 kg

DRUGS (8)
  1. VIOXX [Suspect]
     Route: 048
     Dates: start: 20010511, end: 20040727
  2. ZOCOR [Concomitant]
     Route: 048
  3. IMDUR [Concomitant]
     Route: 048
  4. FLOMAX [Concomitant]
     Route: 065
  5. PLAVIX [Concomitant]
     Route: 048
  6. ATENOLOL [Concomitant]
     Route: 048
  7. ASPIRIN [Concomitant]
     Route: 048
  8. VITAMINS (UNSPECIFIED) [Concomitant]
     Route: 048

REACTIONS (4)
  - CEREBROVASCULAR DISORDER [None]
  - CORONARY ARTERY ATHEROSCLEROSIS [None]
  - MYOCARDIAL INFARCTION [None]
  - PERIPHERAL VASCULAR DISORDER [None]
